FAERS Safety Report 22943671 (Version 3)
Quarter: 2023Q4

REPORT INFORMATION
  Report Type: Spontaneous
  Country: US (occurrence: US)
  Receive Date: 20230914
  Receipt Date: 20231129
  Transmission Date: 20240109
  Serious: Yes (Other)
  Sender: FDA-Public Use
  Company Number: US-PFIZER INC-202101418073

PATIENT
  Age: 67 Year
  Sex: Female
  Weight: 73.9 kg

DRUGS (2)
  1. IBRANCE [Suspect]
     Active Substance: PALBOCICLIB
     Indication: Breast cancer metastatic
     Dosage: 125 MG
     Dates: start: 202109
  2. IBRANCE [Suspect]
     Active Substance: PALBOCICLIB
     Indication: Breast cancer metastatic
     Dosage: 18 CONSECUTIVE DAYS FOLLOWED BY 7 DAYS OFF TREATMENT TO COMPRISE A COMPLETE CYCLE OF 28 DAYS

REACTIONS (3)
  - Neutropenia [Unknown]
  - Off label use [Unknown]
  - Product use issue [Unknown]
